FAERS Safety Report 11942962 (Version 1)
Quarter: 2016Q1

REPORT INFORMATION
  Report Type: Spontaneous
  Country: US (occurrence: US)
  Receive Date: 20160125
  Receipt Date: 20160125
  Transmission Date: 20160526
  Serious: Yes (Hospitalization)
  Sender: FDA-Public Use
  Company Number: US-UNITED THERAPEUTICS-UNT-2015-008498

PATIENT
  Age: 45 Year
  Sex: Female
  Weight: 44.9 kg

DRUGS (4)
  1. REMODULIN [Suspect]
     Active Substance: TREPROSTINIL
     Dosage: 0.184 ?G/KG, CONTINUING
     Route: 041
     Dates: start: 20150722
  2. COUMADIN [Concomitant]
     Active Substance: WARFARIN SODIUM
     Indication: PRODUCT USED FOR UNKNOWN INDICATION
  3. ADCIRCA [Concomitant]
     Active Substance: TADALAFIL
     Indication: PRODUCT USED FOR UNKNOWN INDICATION
  4. REMODULIN [Suspect]
     Active Substance: TREPROSTINIL
     Indication: PULMONARY ARTERIAL HYPERTENSION
     Dosage: 0.177 ?G/KG, CONTINUING
     Route: 058
     Dates: start: 20110523

REACTIONS (6)
  - Device leakage [Unknown]
  - Pruritus [Unknown]
  - Infusion site abscess [Unknown]
  - Injection site inflammation [Unknown]
  - Infusion site cellulitis [Unknown]
  - Injection site infection [Unknown]

NARRATIVE: CASE EVENT DATE: 201507
